FAERS Safety Report 8789593 (Version 1)
Quarter: 2012Q4

REPORT INFORMATION
  Report Type: Spontaneous
  Country: US (occurrence: None)
  Receive Date: 20120905
  Receipt Date: 20120905
  Transmission Date: 20130627
  Serious: Yes (Life-Threatening, Hospitalization)
  Sender: FDA-Public Use
  Company Number: FK201202467

PATIENT
  Age: 9 Year
  Sex: Male

DRUGS (11)
  1. DEXAMETHASONE [Suspect]
     Indication: ACUTE LYMPHOCYTIC LEUKAEMIA
     Route: 048
  2. VINCRISTINE [Suspect]
     Dosage: (not otherwise specified)
     Route: 042
  3. POLYETHYLENE GLYCOLATED-ASPARAGINASE [Suspect]
     Route: 030
  4. 6-MERCAPTOPURINE [Suspect]
  5. CEFTRIAXONE (CEFTRIAXONE) [Concomitant]
  6. CEFTAZIDIME (CEFTAZIDIME) [Concomitant]
  7. AZITHROMYCIN (AZITHROMYCIN) [Concomitant]
  8. OSELTAMIVIR (OSELTAMIVIR) [Concomitant]
  9. VASOACTIVE AGENTS [Concomitant]
  10. METHOTREXATE (METHOTREXATE) [Concomitant]
  11. VINCRISTINE (VINCRISTINE) [Concomitant]

REACTIONS (5)
  - Cryptococcosis [None]
  - Respiratory failure [None]
  - Septic shock [None]
  - Lymphadenopathy mediastinal [None]
  - Pneumonia [None]
